FAERS Safety Report 6586722 (Version 6)
Quarter: 2013Q2

REPORT INFORMATION
  Report Type: Report from Study
  Country: AT (occurrence: AT)
  Receive Date: 20080318
  Receipt Date: 20130424
  Transmission Date: 20140414
  Serious: Yes (Hospitalization, Other)
  Sender: FDA-Public Use
  Company Number: AT-JNJFOC-20080200911

PATIENT
  Age: 43 Year
  Sex: Female
  Weight: 80 kg

DRUGS (13)
  1. INFLIXIMAB, RECOMBINANT [Suspect]
     Indication: CROHN^S DISEASE
     Route: 042
     Dates: start: 20071205
  2. INFLIXIMAB, RECOMBINANT [Suspect]
     Indication: CROHN^S DISEASE
     Route: 042
     Dates: start: 20071218
  3. INFLIXIMAB, RECOMBINANT [Suspect]
     Indication: CROHN^S DISEASE
     Route: 042
     Dates: start: 20080115
  4. SALAZOPYRIN [Concomitant]
     Indication: CROHN^S DISEASE
  5. DUROGESIC [Concomitant]
     Indication: BACK PAIN
     Dates: start: 2005
  6. FOLSAN [Concomitant]
     Indication: ANAEMIA
     Dates: start: 200709
  7. INH [Concomitant]
     Indication: ANTIBIOTIC PROPHYLAXIS
     Dates: start: 20071105
  8. SINTROM [Concomitant]
     Indication: THROMBOSIS PROPHYLAXIS
  9. GABAPENTIN [Concomitant]
     Indication: BACK PAIN
  10. CIPRALEX [Concomitant]
     Indication: DEPRESSION
  11. NEXIUM [Concomitant]
     Indication: PROPHYLAXIS
  12. DOMINAL FORTE [Concomitant]
     Indication: PRODUCT USED FOR UNKNOWN INDICATION
  13. PURINETHOL [Concomitant]
     Dates: start: 20080222

REACTIONS (4)
  - Fistula [Recovered/Resolved]
  - Anal abscess [Recovered/Resolved]
  - Abscess [Recovered/Resolved]
  - Hepatic enzyme increased [Unknown]
